FAERS Safety Report 8433883-9 (Version None)
Quarter: 2012Q2

REPORT INFORMATION
  Report Type: 
  Country: None (occurrence: None)
  Receive Date: 20120613
  Receipt Date: 20120607
  Transmission Date: 20120825
  Serious: Yes (Other)
  Sender: FDA-Public Use
  Company Number: US-PFIZER INC-2012137846

PATIENT
  Sex: Female

DRUGS (1)
  1. SUTENT [Suspect]
     Indication: GASTROINTESTINAL STROMAL TUMOUR
     Dosage: 37.5 MG, 1X/DAY
     Route: 048
     Dates: start: 20111020

REACTIONS (15)
  - HAEMOGLOBIN INCREASED [None]
  - DYSPEPSIA [None]
  - ASTHENIA [None]
  - APHAGIA [None]
  - DISCOMFORT [None]
  - BURNING SENSATION [None]
  - ASCITES [None]
  - PARAESTHESIA [None]
  - FATIGUE [None]
  - SKIN BURNING SENSATION [None]
  - ABDOMINAL PAIN UPPER [None]
  - HYPERTHYROIDISM [None]
  - SKIN EXFOLIATION [None]
  - HYPERCHLORHYDRIA [None]
  - HYPERTENSION [None]
